FAERS Safety Report 23681807 (Version 5)
Quarter: 2025Q3

REPORT INFORMATION
  Report Type: Report from Study
  Country: JP (occurrence: JP)
  Receive Date: 20240328
  Receipt Date: 20250804
  Transmission Date: 20251020
  Serious: Yes (Other)
  Sender: AMGEN
  Company Number: JP-Vifor (International) Inc.-VIT-2024-02686

PATIENT
  Age: 74 Year
  Sex: Male
  Weight: 58.6 kg

DRUGS (27)
  1. AVACOPAN [Suspect]
     Active Substance: AVACOPAN
     Indication: Microscopic polyangiitis
     Dosage: 30 MG BID
     Route: 048
     Dates: start: 20230313, end: 20230501
  2. AVACOPAN [Suspect]
     Active Substance: AVACOPAN
     Dosage: DOSE REDUCED
     Route: 048
     Dates: start: 20230502
  3. DENOSUMAB [Concomitant]
     Active Substance: DENOSUMAB
     Indication: Product used for unknown indication
     Route: 058
     Dates: start: 20230317
  4. PREDNISOLONE [Concomitant]
     Active Substance: PREDNISOLONE
     Indication: Microscopic polyangiitis
     Dosage: 30,MG,QD
     Route: 048
     Dates: end: 20230321
  5. PREDNISOLONE [Concomitant]
     Active Substance: PREDNISOLONE
     Dosage: 15,MG,QD
     Route: 048
     Dates: start: 20230322, end: 20230328
  6. PREDNISOLONE [Concomitant]
     Active Substance: PREDNISOLONE
     Dosage: 10,MG,QD
     Route: 048
     Dates: start: 20230329, end: 20230501
  7. PREDNISOLONE [Concomitant]
     Active Substance: PREDNISOLONE
     Dosage: 7.5,MG,QD
     Route: 048
     Dates: start: 20230502, end: 20230529
  8. PREDNISOLONE [Concomitant]
     Active Substance: PREDNISOLONE
     Dosage: 5,MG,QD
     Route: 048
     Dates: start: 20230530, end: 20230710
  9. PREDNISOLONE [Concomitant]
     Active Substance: PREDNISOLONE
     Dosage: 4,MG,QD
     Route: 048
     Dates: start: 20230711, end: 20230807
  10. PREDNISOLONE [Concomitant]
     Active Substance: PREDNISOLONE
     Dosage: 3,MG,QD
     Route: 048
     Dates: start: 20230808, end: 20231002
  11. PREDNISOLONE [Concomitant]
     Active Substance: PREDNISOLONE
     Dosage: 2.5,MG,QD
     Route: 048
     Dates: start: 20231003, end: 20231106
  12. PREDNISOLONE [Concomitant]
     Active Substance: PREDNISOLONE
     Dosage: 2,MG,QD
     Route: 048
     Dates: start: 20231107, end: 20231211
  13. PREDNISOLONE [Concomitant]
     Active Substance: PREDNISOLONE
     Dosage: 1.5,MG,QD
     Route: 048
     Dates: start: 20231212, end: 20240115
  14. PREDNISOLONE [Concomitant]
     Active Substance: PREDNISOLONE
     Dosage: 1,MG,QD
     Route: 048
     Dates: start: 20240116, end: 20240226
  15. PREDNISOLONE [Concomitant]
     Active Substance: PREDNISOLONE
     Dosage: .5,MG,QD
     Route: 048
     Dates: start: 20240227, end: 20240415
  16. PENTAMIDINE ISETHIONATE [Concomitant]
     Active Substance: PENTAMIDINE ISETHIONATE
     Indication: Antifungal prophylaxis
     Dosage: 300,MG,QW
     Dates: start: 20230315, end: 20230327
  17. SULFAMETHOXAZOLE\TRIMETHOPRIM [Concomitant]
     Active Substance: SULFAMETHOXAZOLE\TRIMETHOPRIM
     Indication: Antifungal prophylaxis
     Dosage: 2000,MG,QW
     Route: 048
     Dates: start: 20230328
  18. ESOMEPRAZOLE [Concomitant]
     Active Substance: ESOMEPRAZOLE
     Route: 048
  19. ONEALFA [Concomitant]
     Active Substance: ALFACALCIDOL
     Route: 048
  20. VILDAGLIPTIN [Concomitant]
     Active Substance: VILDAGLIPTIN
     Route: 048
     Dates: end: 20231106
  21. RITUXIMAB [Concomitant]
     Active Substance: RITUXIMAB
     Indication: Microscopic polyangiitis
     Route: 040
     Dates: start: 20230314, end: 20230314
  22. RITUXIMAB [Concomitant]
     Active Substance: RITUXIMAB
     Route: 040
     Dates: start: 20230320, end: 20230320
  23. RITUXIMAB [Concomitant]
     Active Substance: RITUXIMAB
     Route: 040
     Dates: start: 20230327, end: 20230327
  24. RITUXIMAB [Concomitant]
     Active Substance: RITUXIMAB
     Route: 040
     Dates: start: 20230404, end: 20230404
  25. RITUXIMAB [Concomitant]
     Active Substance: RITUXIMAB
     Route: 040
     Dates: start: 20231003, end: 20231003
  26. RITUXIMAB [Concomitant]
     Active Substance: RITUXIMAB
     Route: 040
     Dates: start: 20240416, end: 20240416
  27. RITUXIMAB [Concomitant]
     Active Substance: RITUXIMAB
     Route: 040
     Dates: start: 20241001, end: 20241001

REACTIONS (2)
  - Liver disorder [Recovered/Resolved]
  - Intentional underdose [Unknown]

NARRATIVE: CASE EVENT DATE: 20230502
